FAERS Safety Report 6279278-8 (Version None)
Quarter: 2009Q3

REPORT INFORMATION
  Report Type: 
  Country: None (occurrence: None)
  Receive Date: 20090723
  Receipt Date: 20081218
  Transmission Date: 20100115
  Serious: No
  Sender: FDA-Public Use
  Company Number: US-AMGEN-KDL316437

PATIENT
  Sex: Male

DRUGS (4)
  1. PROCRIT [Suspect]
     Indication: PRE-EXISTING DISEASE
  2. PROCRIT [Suspect]
     Indication: HIV INFECTION
  3. INTERFERON [Concomitant]
  4. RIBAVIRIN [Concomitant]

REACTIONS (1)
  - ANAEMIA [None]
